FAERS Safety Report 4977577-0 (Version None)
Quarter: 2006Q2

REPORT INFORMATION
  Report Type: 
  Country: None (occurrence: None)
  Receive Date: 20060420
  Receipt Date: 20060412
  Transmission Date: 20061013
  Serious: Yes (Other)
  Sender: FDA-Public Use
  Company Number: GB-JNJFOC-20060304643

PATIENT
  Age: 16 Year
  Sex: Male

DRUGS (1)
  1. RISPERDAL [Suspect]
     Dosage: 2 DOSAGES TAKEN
     Route: 048

REACTIONS (7)
  - DYSPHAGIA [None]
  - GINGIVAL ULCERATION [None]
  - PHARYNGOLARYNGEAL PAIN [None]
  - PYREXIA [None]
  - SEDATION [None]
  - SOMNOLENCE [None]
  - TONGUE ULCERATION [None]
